FAERS Safety Report 5803730-X (Version None)
Quarter: 2008Q3

REPORT INFORMATION
  Report Type: 
  Country: None (occurrence: None)
  Receive Date: 20080708
  Receipt Date: 20070928
  Transmission Date: 20090109
  Serious: No
  Sender: FDA-Public Use
  Company Number: US-AMGEN-KDL240942

PATIENT
  Sex: Male
  Weight: 24.6 kg

DRUGS (3)
  1. KINERET [Suspect]
     Indication: JUVENILE ARTHRITIS
     Route: 058
     Dates: start: 20051202, end: 20070828
  2. PREDNISOLONE [Concomitant]
     Dates: start: 20060720
  3. NAPROSYN [Concomitant]

REACTIONS (2)
  - RASH ERYTHEMATOUS [None]
  - RASH PRURITIC [None]
